FAERS Safety Report 9869527 (Version 1)
Quarter: 2014Q1

REPORT INFORMATION
  Report Type: Spontaneous
  Country: US (occurrence: US)
  Receive Date: 20140205
  Receipt Date: 20140205
  Transmission Date: 20141002
  Serious: No
  Sender: FDA-Public Use
  Company Number: US-PFIZER INC-2014031124

PATIENT
  Age: 40 Year
  Sex: Male
  Weight: 70.3 kg

DRUGS (2)
  1. CHANTIX [Suspect]
     Indication: SMOKING CESSATION THERAPY
     Dosage: UNK
     Route: 048
     Dates: start: 201401, end: 201401
  2. PRILOSEC [Concomitant]
     Indication: ULCER
     Dosage: UNK

REACTIONS (6)
  - Abnormal behaviour [Unknown]
  - Mood altered [Unknown]
  - Depression [Unknown]
  - Abnormal dreams [Unknown]
  - Feeling abnormal [Unknown]
  - Drug ineffective [Unknown]
